FAERS Safety Report 8567701 (Version 2)
Quarter: 2012Q4

REPORT INFORMATION
  Report Type: 
  Country: US (occurrence: US)
  Receive Date: 20120517
  Receipt Date: 20121231
  Transmission Date: 20130627
  Serious: Yes (Hospitalization, Other)
  Sender: FDA-Public Use
  Company Number: US-ELI_LILLY_AND_COMPANY-US201205004206

PATIENT
  Age: 62 None
  Sex: Female

DRUGS (9)
  1. FORTEO [Suspect]
     Indication: OSTEOPOROSIS
     Dosage: 20 ug, qd
     Dates: start: 20110513, end: 201108
  2. FORTEO [Suspect]
     Dosage: 20 ug, bid
     Dates: start: 20110513, end: 201108
  3. PREDNISONE [Concomitant]
     Dosage: 2.5 mg, bid
  4. NAPROSYN [Concomitant]
  5. METHOTREXATE [Concomitant]
     Dosage: 15 mg, weekly (1/W)
  6. CALCIUM [Concomitant]
  7. VITAMIN D [Concomitant]
     Dosage: 50000 IU, bid
  8. CELEBREX [Concomitant]
     Dosage: 200 mg, qd
  9. ATENOLOL [Concomitant]
     Dosage: 75 mg, each evening

REACTIONS (7)
  - Lower limb fracture [Unknown]
  - Bone graft [Unknown]
  - Joint dislocation [Unknown]
  - Depressed mood [Recovering/Resolving]
  - Insomnia [Unknown]
  - Pain in extremity [Unknown]
  - Muscle spasms [Unknown]
